FAERS Safety Report 8612232-7 (Version None)
Quarter: 2012Q3

REPORT INFORMATION
  Report Type: 
  Country: None (occurrence: None)
  Receive Date: 20120822
  Receipt Date: 20120814
  Transmission Date: 20120928
  Serious: Yes (Hospitalization)
  Sender: FDA-Public Use
  Company Number: US-BAYER-2012-039312

PATIENT
  Age: 17 Year
  Sex: Female
  Weight: 102.4 kg

DRUGS (1)
  1. YAZ [Suspect]
     Indication: CONTRACEPTION
     Dosage: UNK
     Dates: start: 20080418, end: 20100201

REACTIONS (4)
  - ABDOMINAL PAIN UPPER [None]
  - INJURY [None]
  - CHOLECYSTECTOMY [None]
  - PAIN [None]
